FAERS Safety Report 6714159-4 (Version None)
Quarter: 2010Q2

REPORT INFORMATION
  Report Type: 
  Country: None (occurrence: None)
  Receive Date: 20100503
  Receipt Date: 20100419
  Transmission Date: 20101027
  Serious: Yes (Other)
  Sender: FDA-Public Use
  Company Number: 010477

PATIENT
  Sex: Male

DRUGS (4)
  1. VIMPAT [Suspect]
     Dosage: (100 MG BID), (IN UPTITRATING PHASE)
  2. LAMOTRIGINE [Concomitant]
  3. RISPERDAL [Concomitant]
  4. TAMSULOSIN HCL [Concomitant]

REACTIONS (1)
  - ATRIOVENTRICULAR BLOCK COMPLETE [None]
